FAERS Safety Report 16098006 (Version 1)
Quarter: 2019Q1

REPORT INFORMATION
  Report Type: Report from Study
  Country: IN (occurrence: IN)
  Receive Date: 20190320
  Receipt Date: 20190320
  Transmission Date: 20190418
  Serious: Yes (Death)
  Sender: FDA-Public Use
  Company Number: PHHY2019IN006021

PATIENT
  Sex: Female

DRUGS (4)
  1. SCAPHO [Suspect]
     Active Substance: SECUKINUMAB
     Indication: PSORIASIS
     Dosage: 300 MG, QW (VIAL)
     Route: 058
     Dates: start: 20181208
  2. SCAPHO [Suspect]
     Active Substance: SECUKINUMAB
     Dosage: 300 MG, QW (VIAL)
     Route: 058
     Dates: start: 20181215
  3. SCAPHO [Suspect]
     Active Substance: SECUKINUMAB
     Dosage: 300 MG, QW (VIAL)
     Route: 058
     Dates: start: 20181222
  4. SCAPHO [Suspect]
     Active Substance: SECUKINUMAB
     Dosage: 300 MG, QW (VIAL)
     Route: 058
     Dates: start: 20181229

REACTIONS (3)
  - Viral infection [Fatal]
  - Pyrexia [Fatal]
  - Myocardial infarction [Fatal]
